FAERS Safety Report 16977934 (Version 1)
Quarter: 2019Q4

REPORT INFORMATION
  Report Type: Spontaneous
  Country: US (occurrence: US)
  Receive Date: 20191031
  Receipt Date: 20191031
  Transmission Date: 20200122
  Serious: Yes (Other)
  Sender: FDA-Public Use
  Company Number: US-ALEMBIC PHARMACUETICALS LIMITED-2019SCAL000820

PATIENT

DRUGS (18)
  1. OXCARBAZEPINE. [Concomitant]
     Active Substance: OXCARBAZEPINE
     Dosage: 1.2 MILLIGRAM, SOLUTION CONCENTRATION OF 0.6 MG/ML AT DAY 3-4
     Route: 065
  2. OXCARBAZEPINE. [Concomitant]
     Active Substance: OXCARBAZEPINE
     Dosage: 4.8 MILLIGRAM, SOLUTION CONCENTRATION OF 6 MG/ML AT DAY 7-8
     Route: 065
  3. OXCARBAZEPINE. [Concomitant]
     Active Substance: OXCARBAZEPINE
     Dosage: 38.4 MILLIGRAM, SOLUTION CONCENTRATION OF 6 MG/ML AT DAY 13-14
     Route: 065
  4. OXCARBAZEPINE. [Concomitant]
     Active Substance: OXCARBAZEPINE
     Dosage: 450 MILLIGRAM, BID
     Route: 065
  5. LAMOTRIGINE. [Suspect]
     Active Substance: LAMOTRIGINE
     Indication: PRODUCT USED FOR UNKNOWN INDICATION
     Dosage: UNK
     Route: 065
  6. OXCARBAZEPINE. [Concomitant]
     Active Substance: OXCARBAZEPINE
     Dosage: 2.4 MILLIGRAM, SOLUTION CONCENTRATION OF 0.6 MG/ML AT DAY 5-6
     Route: 065
  7. OXCARBAZEPINE. [Concomitant]
     Active Substance: OXCARBAZEPINE
     Dosage: 75 MILLIGRAM, OD,SOLUTION CONCENTRATION OF 60 MG/ML AT DAY 15-16
     Route: 065
  8. OXCARBAZEPINE. [Concomitant]
     Active Substance: OXCARBAZEPINE
     Dosage: 75 MILLIGRAM, OD, SOLUTION CONCENTRATION OF 60 MG/ML AT DAY15-16
     Route: 065
  9. OXCARBAZEPINE. [Concomitant]
     Active Substance: OXCARBAZEPINE
     Dosage: 150 MILLIGRAM, BID, SOLUTION CONCENTRATION OF 60 MG/ML AT DAY 21-22
     Route: 065
  10. OXCARBAZEPINE. [Concomitant]
     Active Substance: OXCARBAZEPINE
     Dosage: 300 MILLIGRAM, BID, SOLUTION CONCENTRATION OF 60 MG/ML AT 27 DAYS ONWARDS
     Route: 065
  11. OXCARBAZEPINE. [Concomitant]
     Active Substance: OXCARBAZEPINE
     Dosage: 9.6 MILLIGRAM, SOLUTION CONCENTRATION OF 6 MG/ML AT DAY 9-10
     Route: 065
  12. OXCARBAZEPINE. [Concomitant]
     Active Substance: OXCARBAZEPINE
     Dosage: 0.6 MILLIGRAM, SOLUTION CONCENTRATION OF 0.6 MG/ML IN CLINIC FOLLOWED BY 60 MINUTES OF OBSERVATION
     Route: 065
  13. OXCARBAZEPINE. [Concomitant]
     Active Substance: OXCARBAZEPINE
     Dosage: 19.2 MILLIGRAM, SOLUTION CONCENTRATION OF 6 MG/ML AT DAY 11-12
     Route: 065
  14. OXCARBAZEPINE. [Concomitant]
     Active Substance: OXCARBAZEPINE
     Indication: PRODUCT USED FOR UNKNOWN INDICATION
     Dosage: 0.06 MILLIGRAM, SOLUTION CONCENTRATION OF 0.6 MG/ML, IN CLINIC FOLLOWED BY 30 MINUTES
     Route: 065
  15. OXCARBAZEPINE. [Concomitant]
     Active Substance: OXCARBAZEPINE
     Dosage: 0.6 MILLIGRAM, OD, SOLUTION CONCENTRATION OF 0.6 MG/ML AT DAY 1-2
     Route: 065
  16. OXCARBAZEPINE. [Concomitant]
     Active Substance: OXCARBAZEPINE
     Dosage: 150 MILLIGRAM, BID, SOLUTION CONCENTRATION OF 60 MG/ML AT DAY 23-24
     Route: 065
  17. OXCARBAZEPINE. [Concomitant]
     Active Substance: OXCARBAZEPINE
     Dosage: 75 MILLIGRAM, BID, SOLUTION CONCENTRATION OF 60 MG/ML AT DAY19-20
     Route: 065
  18. OXCARBAZEPINE. [Concomitant]
     Active Substance: OXCARBAZEPINE
     Dosage: 300 MILLIGRAM, BID, SOLUTION CONCENTRATION OF 60 MG/ML AT DAY 25-26
     Route: 065

REACTIONS (4)
  - Therapeutic product cross-reactivity [Unknown]
  - Rash maculo-papular [Recovered/Resolved]
  - Drug ineffective [Unknown]
  - Rash pruritic [Recovered/Resolved]
